FAERS Safety Report 4265902-8 (Version None)
Quarter: 2004Q1

REPORT INFORMATION
  Report Type: 
  Country: None (occurrence: None)
  Receive Date: 20040106
  Receipt Date: 20031224
  Transmission Date: 20041129
  Serious: Yes (Hospitalization)
  Sender: FDA-Public Use
  Company Number: US-JNJFOC-20031205285

PATIENT
  Age: 75 Year
  Sex: Female

DRUGS (7)
  1. INFLIXIMAB (INFLIXIMAB, RECOMBINANT) LYOPHILIZED POWDER [Suspect]
     Indication: RHEUMATOID ARTHRITIS
     Dosage: INTRAVENOUS
     Route: 042
     Dates: start: 20001117
  2. PREDNISONE [Concomitant]
  3. PROTONIX [Concomitant]
  4. METOPROLOL SUCCINATE [Concomitant]
  5. CELEXA [Concomitant]
  6. DETROL [Concomitant]
  7. TYLENOL [Concomitant]

REACTIONS (6)
  - CONVULSION [None]
  - HEADACHE [None]
  - HYDROCEPHALUS [None]
  - HYPONATRAEMIA [None]
  - NEUROLOGICAL SYMPTOM [None]
  - SUBARACHNOID HAEMORRHAGE [None]
